FAERS Safety Report 6967504-9 (Version None)
Quarter: 2010Q3

REPORT INFORMATION
  Report Type: 
  Country: None (occurrence: None)
  Receive Date: 20100901
  Receipt Date: 20100816
  Transmission Date: 20110219
  Serious: Yes (Hospitalization)
  Sender: FDA-Public Use
  Company Number: WAES 1008BRA00042

PATIENT
  Age: 78 Year
  Sex: Male

DRUGS (11)
  1. ZOCOR [Suspect]
     Dates: end: 20100701
  2. ALLOPURINOL [Concomitant]
  3. ATENOLOL [Concomitant]
  4. BLINDED THERAPY [Concomitant]
  5. ENALAPRIL MALEATE [Concomitant]
  6. FUROSEMIDE [Concomitant]
  7. METFORMIN [Concomitant]
  8. OMEPRAZOLE [Concomitant]
  9. PAROXETINE HCL [Concomitant]
  10. PLACEBO [Concomitant]
  11. ZOLPIDEM TARTRATE [Concomitant]

REACTIONS (5)
  - CARDIAC FAILURE [None]
  - CHOLECYSTITIS [None]
  - CONDITION AGGRAVATED [None]
  - MYOPATHY [None]
  - PNEUMONIA [None]
